FAERS Safety Report 23843010 (Version 1)
Quarter: 2024Q2

REPORT INFORMATION
  Report Type: Spontaneous
  Country: US (occurrence: None)
  Receive Date: 20240510
  Receipt Date: 20240510
  Transmission Date: 20240715
  Serious: No
  Sender: FDA-Public Use
  Company Number: None

PATIENT
  Age: 31 Year
  Sex: Female
  Weight: 139 kg

DRUGS (1)
  1. SPRYCEL [Suspect]
     Active Substance: DASATINIB
     Dates: end: 20240325

REACTIONS (6)
  - Anaemia [None]
  - Platelet count decreased [None]
  - White blood cell count decreased [None]
  - Neutrophil count decreased [None]
  - Lymphocyte count decreased [None]
  - Obesity [None]

NARRATIVE: CASE EVENT DATE: 20230324
